FAERS Safety Report 16548963 (Version 1)
Quarter: 2019Q3

REPORT INFORMATION
  Report Type: Spontaneous
  Country: US (occurrence: US)
  Receive Date: 20190709
  Receipt Date: 20190709
  Transmission Date: 20191004
  Serious: No
  Sender: FDA-Public Use
  Company Number: US-009507513-1907USA004269

PATIENT
  Sex: Female

DRUGS (1)
  1. NUVARING [Suspect]
     Active Substance: ETHINYL ESTRADIOL\ETONOGESTREL
     Dosage: INSERT ONE NEW RING WEEKLY FOR 3 WEEKS THEN LEAVE OUT FOR THE 4TH WEEK
     Route: 067

REACTIONS (3)
  - Product prescribing error [Unknown]
  - No adverse event [Unknown]
  - Incorrect product administration duration [Unknown]
